FAERS Safety Report 10246627 (Version 1)
Quarter: 2014Q2

REPORT INFORMATION
  Report Type: Spontaneous
  Country: IT (occurrence: IT)
  Receive Date: 20140619
  Receipt Date: 20140619
  Transmission Date: 20141212
  Serious: Yes (Other)
  Sender: FDA-Public Use
  Company Number: IT-PERRIGO-14IT005856

PATIENT
  Age: 26 Year
  Sex: Male

DRUGS (2)
  1. MESALAMINE RX 66.667 MG/ML 2N9 [Suspect]
     Indication: CROHN^S DISEASE
     Dosage: 500 MG, TID
     Route: 065
     Dates: start: 20120516, end: 20120614
  2. GAMMA GLOBULIN [Concomitant]
     Indication: BRUTON^S AGAMMAGLOBULINAEMIA
     Dosage: UNK, UNK
     Route: 042
     Dates: start: 199703

REACTIONS (1)
  - Cholestasis [Recovered/Resolved]
